FAERS Safety Report 7266408-4 (Version None)
Quarter: 2011Q1

REPORT INFORMATION
  Report Type: 
  Country: None (occurrence: None)
  Receive Date: 20110131
  Receipt Date: 20110120
  Transmission Date: 20110831
  Serious: Yes (Other)
  Sender: FDA-Public Use
  Company Number: JP-PFIZER INC-JP-WYE-H16789910

PATIENT
  Age: 34 Year
  Sex: Female
  Weight: 48 kg

DRUGS (8)
  1. CINAL [Concomitant]
     Indication: HYPOVITAMINOSIS
     Dosage: 3 DF, UNK
     Route: 048
     Dates: start: 20100609
  2. ZOMIG [Concomitant]
     Indication: MIGRAINE
     Dosage: UNK
     Route: 048
     Dates: start: 20100122
  3. ZOLOFT [Concomitant]
     Indication: DEPRESSION
     Dosage: UNK
     Route: 048
     Dates: start: 20100122, end: 20100203
  4. GASTER [Concomitant]
  5. ZOLOFT [Concomitant]
     Dosage: UNK
     Route: 048
     Dates: start: 20100204, end: 20100208
  6. KEISHIBUKURYOUGAN [Concomitant]
     Dosage: 22.5 MG, UNK
     Route: 048
     Dates: start: 20100319, end: 20100430
  7. ZOLOFT [Concomitant]
     Dosage: UNK
     Route: 048
     Dates: start: 20100209
  8. LEVONORGESTREL AND ETHINYL ESTRADIOL [Suspect]
     Indication: CONTRACEPTION
     Dosage: 1 TABLET 1 TIMES PER 1 DAY
     Route: 048
     Dates: start: 20100708, end: 20100720

REACTIONS (1)
  - HEPATITIS ACUTE [None]
